FAERS Safety Report 7136972-4 (Version None)
Quarter: 2010Q4

REPORT INFORMATION
  Report Type: 
  Country: None (occurrence: None)
  Receive Date: 20101115
  Receipt Date: 20101105
  Transmission Date: 20110411
  Serious: Yes (Death, Other)
  Sender: FDA-Public Use
  Company Number: THYM-1001242

PATIENT
  Age: 54 Year
  Sex: Female
  Weight: 52 kg

DRUGS (8)
  1. THYMOGLOBULIN [Suspect]
     Indication: STEM CELL TRANSPLANT
     Dosage: 50 MG/KG, QD, INTRAVENOUS
     Route: 042
     Dates: start: 20090214, end: 20090217
  2. FLUDARA [Concomitant]
  3. MELPHALAN HYDROCHLORIDE [Concomitant]
  4. TACROLIMUS [Concomitant]
  5. METHYLPREDNISOLONE [Concomitant]
  6. MYCOPHENOLATE MOFETIL [Concomitant]
  7. CYTARABINE [Concomitant]
  8. PREDNISOLONE [Concomitant]

REACTIONS (4)
  - ACUTE GRAFT VERSUS HOST DISEASE IN INTESTINE [None]
  - GASTROINTESTINAL HAEMORRHAGE [None]
  - LIVER DISORDER [None]
  - SHOCK HAEMORRHAGIC [None]
